FAERS Safety Report 8439891-6 (Version None)
Quarter: 2012Q2

REPORT INFORMATION
  Report Type: 
  Country: None (occurrence: None)
  Receive Date: 20120323
  Receipt Date: 20110714
  Transmission Date: 20120825
  Serious: Yes (Life-Threatening, Hospitalization)
  Sender: FDA-Public Use
  Company Number: 163-21880-11061604

PATIENT
  Age: 63 Year
  Sex: Male

DRUGS (11)
  1. REGLAN [Concomitant]
  2. GLYBURIDE [Concomitant]
  3. ATENOLOL [Concomitant]
  4. ENABLEX [Concomitant]
  5. PRILOSEC [Concomitant]
  6. SIMVASTATIN [Concomitant]
  7. ZOCOR [Concomitant]
  8. ASPIRIN [Concomitant]
  9. REVLIMID [Suspect]
     Indication: MULTIPLE MYELOMA
     Dosage: 10 MG, TWICE DAILY, PO
     Route: 048
     Dates: start: 20110210, end: 20110101
  10. MIRALAX [Concomitant]
  11. COUMADIN [Concomitant]

REACTIONS (2)
  - PULMONARY EMBOLISM [None]
  - DEEP VEIN THROMBOSIS [None]
